FAERS Safety Report 4461097-6 (Version None)
Quarter: 2004Q3

REPORT INFORMATION
  Report Type: 
  Country: None (occurrence: None)
  Receive Date: 20040923
  Receipt Date: 20040915
  Transmission Date: 20050211
  Serious: Yes (Hospitalization)
  Sender: FDA-Public Use
  Company Number: US-2004-025837

PATIENT
  Age: 11 Year
  Sex: Male

DRUGS (2)
  1. BETASERON [Suspect]
     Indication: MULTIPLE SCLEROSIS
     Dosage: 8 MIU, EVERY 2D, SUBCUTANEOUS
     Route: 058
     Dates: start: 20031002, end: 20040404
  2. NOVANTRONE ^IMMUNEX^ (MITOXANTRONE HYDROCHLORIDE) [Concomitant]

REACTIONS (6)
  - CONDITION AGGRAVATED [None]
  - DIFFICULTY IN WALKING [None]
  - MULTIPLE SCLEROSIS [None]
  - NECK PAIN [None]
  - SCREAMING [None]
  - UNEVALUABLE EVENT [None]
